FAERS Safety Report 5647302-9 (Version None)
Quarter: 2008Q1

REPORT INFORMATION
  Report Type: 
  Country: None (occurrence: None)
  Receive Date: 20080228
  Receipt Date: 20080212
  Transmission Date: 20080703
  Serious: Yes (Hospitalization)
  Sender: FDA-Public Use
  Company Number: 6040804

PATIENT
  Age: 55 Year
  Sex: Female

DRUGS (11)
  1. BISOPROLOL FUMARATE [Suspect]
     Indication: DRUG USE FOR UNKNOWN INDICATION
     Dosage: 1 DOSAGE ORAL
     Route: 048
  2. ACTRAPID                 (INSULIN HUMAN) [Suspect]
     Indication: DIABETES MELLITUS
     Dosage: 16 IU (16 IU, 1 D) SUBCUTANEOUS
     Route: 058
  3. ISOPHANE INSULIN [Suspect]
     Indication: DIABETES MELLITUS
     Dosage: 18 IU (18 IU, 1 D) SUBCUTANEOUS
     Route: 058
  4. FONZYLANE               (BUFLOMEDIL HYDROCHLORIDE) [Concomitant]
  5. TRAMADOL HCL [Concomitant]
  6. ACETAMINOPHEN [Concomitant]
  7. ASPIRIN [Concomitant]
  8. PERINDOPRIL ERBUMINE [Concomitant]
  9. INNOHEP [Concomitant]
  10. OGAST (LANSOPRAZOLE) [Concomitant]
  11. LORAZEPAM [Concomitant]

REACTIONS (7)
  - ARTERIOSCLEROSIS OBLITERANS [None]
  - FALL [None]
  - HAEMOGLOBIN DECREASED [None]
  - HYPOGLYCAEMIA [None]
  - MALAISE [None]
  - MUSCLE SPASMS [None]
  - RENAL IMPAIRMENT [None]
